FAERS Safety Report 7438545-2 (Version None)
Quarter: 2011Q2

REPORT INFORMATION
  Report Type: 
  Country: None (occurrence: None)
  Receive Date: 20110426
  Receipt Date: 20110413
  Transmission Date: 20111010
  Serious: Yes (Hospitalization)
  Sender: FDA-Public Use
  Company Number: JP-JNJFOC-20110407014

PATIENT
  Age: 45 Year
  Sex: Male
  Weight: 60 kg

DRUGS (11)
  1. PREDONINE [Concomitant]
     Route: 048
  2. REMICADE [Suspect]
     Route: 042
  3. PREDONINE [Concomitant]
     Route: 048
  4. REMICADE [Suspect]
     Route: 042
  5. PREDONINE [Concomitant]
     Indication: COLITIS ULCERATIVE
     Route: 048
  6. GASTER D [Concomitant]
     Indication: PROPHYLAXIS
     Route: 048
  7. PREDONINE [Concomitant]
     Route: 048
  8. AMARYL [Concomitant]
     Indication: DIABETES MELLITUS
  9. PENTASA [Concomitant]
     Indication: COLITIS ULCERATIVE
     Route: 048
  10. REMICADE [Suspect]
     Indication: COLITIS ULCERATIVE
     Route: 042
  11. REMICADE [Suspect]
     Route: 042

REACTIONS (2)
  - MUSCULAR WEAKNESS [None]
  - HYPOAESTHESIA [None]
